FAERS Safety Report 21185337 (Version 2)
Quarter: 2022Q3

REPORT INFORMATION
  Report Type: Spontaneous
  Country: CN (occurrence: CN)
  Receive Date: 20220808
  Receipt Date: 20220908
  Transmission Date: 20221027
  Serious: Yes (Death, Other)
  Sender: FDA-Public Use
  Company Number: CN-BRACCO-2022CN03025

PATIENT
  Age: 54 Year
  Sex: Male

DRUGS (7)
  1. SULFUR HEXAFLUORIDE [Suspect]
     Active Substance: SULFUR HEXAFLUORIDE
     Indication: Ultrasound thyroid
     Dosage: 2.5 ML, SINGLE
     Route: 042
     Dates: start: 20220729, end: 20220729
  2. SULFUR HEXAFLUORIDE [Suspect]
     Active Substance: SULFUR HEXAFLUORIDE
     Indication: Ultrasound thyroid
     Dosage: 2.5 ML, SINGLE
     Route: 042
     Dates: start: 20220729, end: 20220729
  3. SULFUR HEXAFLUORIDE [Suspect]
     Active Substance: SULFUR HEXAFLUORIDE
     Indication: Ultrasound thyroid
     Dosage: 2.5 ML, SINGLE
     Route: 042
     Dates: start: 20220729, end: 20220729
  4. LEVAMLODIPINE BESYLATE [Concomitant]
     Active Substance: LEVAMLODIPINE BESYLATE
     Dosage: HALF TABLET, QD
     Route: 048
  5. ATORVASTATIN CALCIUM [Concomitant]
     Active Substance: ATORVASTATIN CALCIUM
     Dosage: 1 TABLET QD
     Route: 048
  6. METOPROLOL SUCCINATE [Concomitant]
     Active Substance: METOPROLOL SUCCINATE
     Dosage: 1 TABLET, QD
     Route: 048
  7. LIDOCAINE [Concomitant]
     Active Substance: LIDOCAINE
     Dosage: UNK
     Dates: start: 20220729, end: 20220729

REACTIONS (11)
  - Cardio-respiratory arrest [Fatal]
  - Loss of consciousness [Fatal]
  - Dyspnoea [Fatal]
  - Pallor [Fatal]
  - Cyanosis [Fatal]
  - Coma [Fatal]
  - Hypotonia [Fatal]
  - Seizure [Fatal]
  - Heart sounds abnormal [Fatal]
  - Irregular breathing [Fatal]
  - Off label use [Unknown]

NARRATIVE: CASE EVENT DATE: 20220729
